FAERS Safety Report 20642648 (Version 1)
Quarter: 2022Q1

REPORT INFORMATION
  Report Type: Spontaneous
  Country: US (occurrence: US)
  Receive Date: 20220328
  Receipt Date: 20220328
  Transmission Date: 20220423
  Serious: No
  Sender: FDA-Public Use
  Company Number: US-BAYER-2022A044373

PATIENT

DRUGS (1)
  1. MIRALAX [Suspect]
     Active Substance: POLYETHYLENE GLYCOL 3350
     Dosage: UNK, QD, TAKEN FOR YEARS
     Route: 048

REACTIONS (2)
  - Incorrect product administration duration [Unknown]
  - Product odour abnormal [Unknown]
